FAERS Safety Report 20706172 (Version 2)
Quarter: 2022Q2

REPORT INFORMATION
  Report Type: Spontaneous
  Country: US (occurrence: US)
  Receive Date: 20220413
  Receipt Date: 20220503
  Transmission Date: 20220721
  Serious: Yes (Other)
  Sender: FDA-Public Use
  Company Number: US-THERATECHNOLOGIES INC.-2022-THE-IBA-000080

PATIENT
  Sex: Male
  Weight: 82.993 kg

DRUGS (1)
  1. TROGARZO [Suspect]
     Active Substance: IBALIZUMAB-UIYK
     Indication: HIV infection
     Dosage: 200 MG Q 2 WEEKS
     Route: 042
     Dates: start: 20191029

REACTIONS (1)
  - Non-small cell lung cancer metastatic [Not Recovered/Not Resolved]
